FAERS Safety Report 9946184 (Version 1)
Quarter: 2014Q1

REPORT INFORMATION
  Report Type: Spontaneous
  Country: US (occurrence: US)
  Receive Date: 20140303
  Receipt Date: 20140303
  Transmission Date: 20141002
  Serious: No
  Sender: FDA-Public Use
  Company Number: US-AMGEN-USASP2013078694

PATIENT
  Age: 67 Year
  Sex: Male

DRUGS (1)
  1. ENBREL [Suspect]
     Indication: RHEUMATOID ARTHRITIS
     Dosage: 50 MG, QWK
     Route: 065
     Dates: start: 20120507, end: 201308

REACTIONS (10)
  - Joint swelling [Recovered/Resolved]
  - Oedema peripheral [Not Recovered/Not Resolved]
  - Joint stiffness [Recovered/Resolved]
  - Arthralgia [Not Recovered/Not Resolved]
  - Pain in extremity [Not Recovered/Not Resolved]
  - Musculoskeletal stiffness [Recovered/Resolved]
  - Infusion site bruising [Recovered/Resolved]
  - Infusion site swelling [Recovered/Resolved]
  - Mobility decreased [Recovered/Resolved]
  - Pelvic pain [Recovered/Resolved]
